FAERS Safety Report 5145948-8 (Version None)
Quarter: 2006Q4

REPORT INFORMATION
  Report Type: 
  Country: None (occurrence: None)
  Receive Date: 20061108
  Receipt Date: 20061030
  Transmission Date: 20070319
  Serious: Yes (Hospitalization, Other)
  Sender: FDA-Public Use
  Company Number: GB-PURDUE-USA_2006_0025541

PATIENT
  Age: 40 Year
  Sex: Female

DRUGS (1)
  1. MORPHINE SULFATE [Suspect]
     Indication: BACK PAIN
     Dosage: 360 MG, SEE TEXT

REACTIONS (23)
  - ABNORMAL BEHAVIOUR [None]
  - ACCIDENTAL OVERDOSE [None]
  - ACIDOSIS [None]
  - COGNITIVE DISORDER [None]
  - CONFUSIONAL STATE [None]
  - DISORIENTATION [None]
  - DISTRACTIBILITY [None]
  - DISTURBANCE IN ATTENTION [None]
  - ECHOLALIA [None]
  - ECHOPRAXIA [None]
  - FAECAL INCONTINENCE [None]
  - HEADACHE [None]
  - LEUKOENCEPHALOMYELITIS [None]
  - LOSS OF CONSCIOUSNESS [None]
  - MEMORY IMPAIRMENT [None]
  - NEGLECT OF PERSONAL APPEARANCE [None]
  - PERSEVERATION [None]
  - PNEUMONIA ASPIRATION [None]
  - POVERTY OF SPEECH [None]
  - RESPIRATORY ARREST [None]
  - RESTLESSNESS [None]
  - URINARY INCONTINENCE [None]
  - VISUAL DISTURBANCE [None]
